FAERS Safety Report 9343234 (Version 1)
Quarter: 2013Q2

REPORT INFORMATION
  Report Type: Spontaneous
  Country: CN (occurrence: CN)
  Receive Date: 20130611
  Receipt Date: 20130611
  Transmission Date: 20140414
  Serious: Yes (Other)
  Sender: FDA-Public Use
  Company Number: CN-ASTRAZENECA-2013SE41394

PATIENT
  Age: 29586 Day
  Sex: Female
  Weight: 49 kg

DRUGS (2)
  1. BUDESONIDE [Suspect]
     Indication: LUNG INFECTION
     Route: 055
     Dates: start: 20121207, end: 20121208
  2. AMINOPHYLLINE [Suspect]
     Indication: LUNG INFECTION
     Route: 041
     Dates: start: 20121207, end: 20121208

REACTIONS (4)
  - Mental disorder [Recovered/Resolved]
  - Partner stress [Recovered/Resolved]
  - Suicidal behaviour [Recovered/Resolved]
  - Delirium [Recovered/Resolved]
